FAERS Safety Report 7176584-X (Version None)
Quarter: 2010Q4

REPORT INFORMATION
  Report Type: 
  Country: None (occurrence: None)
  Receive Date: 20101216
  Receipt Date: 20101216
  Transmission Date: 20110411
  Serious: No
  Sender: FDA-Public Use
  Company Number: None

PATIENT
  Age: 36 Year
  Sex: Female
  Weight: 113.3993 kg

DRUGS (2)
  1. DEPO-MEDROL [Suspect]
     Indication: SWELLING
     Dates: start: 20101209, end: 20101214
  2. DEPO-MEDROL [Suspect]
     Indication: TENDONITIS
     Dates: start: 20101209, end: 20101214

REACTIONS (2)
  - RASH PRURITIC [None]
  - SOMNOLENCE [None]
